FAERS Safety Report 8596936-0 (Version None)
Quarter: 2012Q3

REPORT INFORMATION
  Report Type: 
  Country: None (occurrence: None)
  Receive Date: 20120815
  Receipt Date: 20120803
  Transmission Date: 20120928
  Serious: Yes (Hospitalization)
  Sender: FDA-Public Use
  Company Number: PL-AMGEN-UK226538

PATIENT
  Age: 65 Year
  Sex: Female

DRUGS (11)
  1. CINACALCET HYDROCHLORIDE [Suspect]
     Indication: HYPERPARATHYROIDISM SECONDARY
     Dosage: 90 MG, QD
     Route: 048
     Dates: start: 20070307
  2. ISOPHANE INSULIN [Concomitant]
     Dosage: UNK UNK, BID
  3. NEURONTIN [Concomitant]
     Dosage: 400 MG, UNK
  4. FUROSEMIDE [Concomitant]
     Dosage: 160 MG, UNK
  5. OMEPRAZOLE [Concomitant]
     Dosage: 20 MG, UNK
  6. FOLIC ACID [Concomitant]
     Dosage: 5 MG, UNK
  7. PENTOXIFYLLINE [Concomitant]
     Dosage: 600 MG, QD
  8. ALLOPURINOL [Concomitant]
     Dosage: 100 MG, UNK
  9. PIRACETAM [Concomitant]
     Dosage: 24 G, UNK
  10. CALCIUM CARBONATE [Concomitant]
     Dosage: UNK UNK, TID
  11. ASPIRIN [Concomitant]
     Dosage: 75 MG, UNK

REACTIONS (2)
  - LOSS OF CONSCIOUSNESS [None]
  - CONVULSION [None]
